FAERS Safety Report 4356360-3 (Version None)
Quarter: 2004Q2

REPORT INFORMATION
  Report Type: 
  Country: None (occurrence: None)
  Receive Date: 20040506
  Receipt Date: 20040426
  Transmission Date: 20050107
  Serious: Yes (Hospitalization)
  Sender: FDA-Public Use
  Company Number: US-JNJFOC-20040405542

PATIENT
  Age: 72 Year
  Sex: Female
  Weight: 50.8029 kg

DRUGS (15)
  1. INFLIXIMAB (INFLIXIMAB, RECOMBINANT) LYOPHILIZED POWDER [Suspect]
     Indication: RHEUMATOID ARTHRITIS
     Dosage: INTRAVENOUS
     Route: 042
     Dates: start: 20010213
  2. FUROSEMIDE [Concomitant]
  3. ZAROXOLYN [Concomitant]
  4. POTASSIUM (POTASSIUM) [Concomitant]
  5. MULTIVITAMIN (MULTIVITAMINS) [Concomitant]
  6. PREVACID [Concomitant]
  7. IRON (IRON) [Concomitant]
  8. ATENOLOL [Concomitant]
  9. SYNTHROID [Concomitant]
  10. EVISTA [Concomitant]
  11. FOLIC ACID [Concomitant]
  12. ASPIRIN [Concomitant]
  13. METHOTREXATE [Concomitant]
  14. FOSAMAX [Concomitant]
  15. NAPROXEN [Concomitant]

REACTIONS (4)
  - ESCHERICHIA URINARY TRACT INFECTION [None]
  - OEDEMA PERIPHERAL [None]
  - SEPTIC SHOCK [None]
  - UROSEPSIS [None]
